FAERS Safety Report 5366994-5 (Version None)
Quarter: 2007Q2

REPORT INFORMATION
  Report Type: 
  Country: None (occurrence: None)
  Receive Date: 20070619
  Receipt Date: 20070607
  Transmission Date: 20071010
  Serious: Yes (Life-Threatening, Hospitalization, Other)
  Sender: FDA-Public Use
  Company Number: GXKR2007TR04965

PATIENT
  Age: 56 Year
  Sex: Female

DRUGS (3)
  1. METOPROLOL SUCCINATE [Suspect]
     Indication: HYPERTENSION
     Dosage: 1500MG ONCE,
  2. RAMIPRIL HYDROCHLOROTHIAZIDE [Concomitant]
  3. TIOTROPIUM              (TIOTROPIUM) [Concomitant]

REACTIONS (14)
  - ACUTE MYOCARDIAL INFARCTION [None]
  - ALTERED STATE OF CONSCIOUSNESS [None]
  - ARRHYTHMIA [None]
  - ARTERIOGRAM CORONARY [None]
  - BRADYCARDIA [None]
  - CONFUSIONAL STATE [None]
  - CORONARY ARTERY OCCLUSION [None]
  - DISORIENTATION [None]
  - DRUG TOXICITY [None]
  - HYPERTENSION [None]
  - INTENTIONAL OVERDOSE [None]
  - LOSS OF CONSCIOUSNESS [None]
  - MITRAL VALVE INCOMPETENCE [None]
  - VENTRICULAR HYPOKINESIA [None]
